FAERS Safety Report 10687700 (Version 2)
Quarter: 2015Q1

REPORT INFORMATION
  Report Type: Spontaneous
  Country: DE (occurrence: DE)
  Receive Date: 20150102
  Receipt Date: 20150116
  Transmission Date: 20150720
  Serious: Yes (Hospitalization)
  Sender: FDA-Public Use
  Company Number: DE-JNJFOC-20141216252

PATIENT
  Sex: Female
  Weight: 65 kg

DRUGS (1)
  1. DURAGESIC [Suspect]
     Active Substance: FENTANYL
     Indication: ARTHRITIS
     Route: 062
     Dates: start: 20141101, end: 20141214

REACTIONS (3)
  - Toxicity to various agents [Not Recovered/Not Resolved]
  - Somnolence [Unknown]
  - Staphylococcal infection [Not Recovered/Not Resolved]
